FAERS Safety Report 5454819-9 (Version None)
Quarter: 2007Q3

REPORT INFORMATION
  Report Type: 
  Country: None (occurrence: None)
  Receive Date: 20070917
  Receipt Date: 20070815
  Transmission Date: 20080115
  Serious: Yes (Hospitalization)
  Sender: FDA-Public Use
  Company Number: JP-BOEHRINGER INGELHEIM PHARMACEUTICALS, INC.-2006-BP-08526NB

PATIENT
  Sex: Male

DRUGS (7)
  1. VIRAMUNE [Suspect]
     Indication: HIV INFECTION
     Route: 048
     Dates: start: 20000926
  2. RETROVIR [Suspect]
     Indication: HIV INFECTION
     Route: 048
     Dates: start: 20000926, end: 20060822
  3. EPIVIR [Suspect]
     Indication: HIV INFECTION
     Route: 048
     Dates: start: 20000926, end: 20060822
  4. ZERIT [Suspect]
     Indication: HIV INFECTION
     Route: 048
     Dates: start: 20020405, end: 20050516
  5. RENIVACE [Concomitant]
     Indication: HYPERTENSION
     Route: 048
     Dates: start: 20050401
  6. GASMOTIN [Concomitant]
     Indication: GASTRIC CANCER
     Route: 048
     Dates: start: 20050401
  7. MAGNESIUM OXIDE [Concomitant]
     Indication: GASTRIC CANCER
     Route: 048
     Dates: start: 20050401

REACTIONS (2)
  - DEPRESSION [None]
  - SUICIDE ATTEMPT [None]
